FAERS Safety Report 5208665-1 (Version None)
Quarter: 2007Q1

REPORT INFORMATION
  Report Type: 
  Country: None (occurrence: None)
  Receive Date: 20070116
  Receipt Date: 20070102
  Transmission Date: 20070707
  Serious: Yes (Other)
  Sender: FDA-Public Use
  Company Number: PHEH2005US10721

PATIENT
  Age: 77 Year
  Sex: Female

DRUGS (11)
  1. PEPCID [Concomitant]
  2. AREDIA [Suspect]
     Indication: MULTIPLE MYELOMA
     Dosage: EVERY 4 WEEKS
     Dates: start: 20010105, end: 20030908
  3. DECADRON [Suspect]
     Indication: MULTIPLE MYELOMA
     Dates: start: 20021121, end: 20030814
  4. PREDNISONE TAB [Concomitant]
  5. FAMVIR /UNK/ [Concomitant]
     Dosage: 500 MG, Q8H
     Route: 048
  6. MELPHALAN [Concomitant]
     Indication: MULTIPLE MYELOMA
  7. XANAX [Concomitant]
     Indication: INSOMNIA
     Dosage: 0.5 MG, QHS
     Route: 048
     Dates: start: 20010326
  8. PAXIL [Concomitant]
     Indication: DEPRESSION
     Dosage: 10 MG, DAILY
  9. BACTRIM [Concomitant]
     Dosage: 2 DAYS PER WEEK
     Dates: start: 20030228
  10. BEXTRA [Concomitant]
     Dosage: 20 MG, QD
     Dates: start: 20030228
  11. THALIDOMIDE [Concomitant]
     Indication: MULTIPLE MYELOMA

REACTIONS (50)
  - ACTINOMYCOSIS [None]
  - ALOPECIA [None]
  - ALVEOLOPLASTY [None]
  - ATELECTASIS [None]
  - BACK PAIN [None]
  - BLOOD GLUCOSE INCREASED [None]
  - BLOOD LACTATE DEHYDROGENASE INCREASED [None]
  - BLOODY DISCHARGE [None]
  - BONE DEBRIDEMENT [None]
  - BONE DISORDER [None]
  - BONE LESION [None]
  - CHEST PAIN [None]
  - CLOSTRIDIAL INFECTION [None]
  - COUGH [None]
  - DENTAL CARIES [None]
  - EATING DISORDER [None]
  - ERYTHEMA [None]
  - EYE SWELLING [None]
  - FIBROSIS [None]
  - GINGIVAL PAIN [None]
  - HAEMATOCRIT DECREASED [None]
  - HAEMOGLOBIN DECREASED [None]
  - HEADACHE [None]
  - INFLAMMATION [None]
  - JAW OPERATION [None]
  - KLEBSIELLA INFECTION [None]
  - LEUKOPENIA [None]
  - MALAISE [None]
  - MALIGNANT NEOPLASM PROGRESSION [None]
  - MEAN CELL HAEMOGLOBIN [None]
  - MEAN CELL VOLUME INCREASED [None]
  - MOUTH ULCERATION [None]
  - NORMOCHROMIC NORMOCYTIC ANAEMIA [None]
  - OEDEMA PERIPHERAL [None]
  - ORAL PAIN [None]
  - OSTEITIS [None]
  - OSTEOMYELITIS [None]
  - OSTEONECROSIS [None]
  - OSTEOSCLEROSIS [None]
  - PAIN [None]
  - PURULENT DISCHARGE [None]
  - RASH [None]
  - RED BLOOD CELL COUNT DECREASED [None]
  - RED CELL DISTRIBUTION WIDTH INCREASED [None]
  - RIB FRACTURE [None]
  - SEQUESTRECTOMY [None]
  - SWELLING FACE [None]
  - TOOTH EXTRACTION [None]
  - VISION BLURRED [None]
  - WEIGHT DECREASED [None]
